FAERS Safety Report 8883703 (Version 1)
Quarter: 2012Q4

REPORT INFORMATION
  Report Type: 
  Country: US (occurrence: US)
  Receive Date: 20121102
  Receipt Date: 20121102
  Transmission Date: 20130627
  Serious: No
  Sender: FDA-Public Use
  Company Number: US-GLAXOSMITHKLINE-A0991812A

PATIENT
  Age: 69 Year
  Sex: Female

DRUGS (5)
  1. HORIZANT [Suspect]
     Indication: RESTLESS LEGS SYNDROME
     Dosage: 1TAB Per day
     Route: 048
     Dates: start: 20120814
  2. HYDROCODONE [Suspect]
     Indication: PRODUCT USED FOR UNKNOWN INDICATION
     Route: 065
  3. THYROID MEDICATION [Concomitant]
  4. VITAMINS [Concomitant]
  5. B12 [Concomitant]

REACTIONS (5)
  - Feeling drunk [Recovered/Resolved]
  - Gait disturbance [Recovered/Resolved]
  - Drug interaction [Unknown]
  - Therapeutic response unexpected [Unknown]
  - Product quality issue [Unknown]
